FAERS Safety Report 5724575-5 (Version None)
Quarter: 2008Q2

REPORT INFORMATION
  Report Type: 
  Country: None (occurrence: None)
  Receive Date: 20080430
  Receipt Date: 20080430
  Transmission Date: 20081010
  Serious: Yes (Other)
  Sender: FDA-Public Use
  Company Number: None

PATIENT
  Sex: Male
  Weight: 74.8435 kg

DRUGS (1)
  1. DIGITEK 0.25 MG BERTEK [Suspect]
     Indication: SUPRAVENTRICULAR TACHYCARDIA
     Dosage: 0.25 MG DAILY PO
     Route: 048
     Dates: start: 20080401, end: 20080428

REACTIONS (2)
  - CARDIOACTIVE DRUG LEVEL INCREASED [None]
  - PALPITATIONS [None]
